FAERS Safety Report 8089825 (Version 3)
Quarter: 2013Q2

REPORT INFORMATION
  Report Type: Report from Study
  Country: US (occurrence: US)
  Receive Date: 20110815
  Receipt Date: 20130628
  Transmission Date: 20140414
  Serious: Yes (Hospitalization)
  Sender: FDA-Public Use
  Company Number: US-ASTRAZENECA-2011SE47431

PATIENT
  Age: 22797 Day
  Sex: Female
  Weight: 59.9 kg

DRUGS (7)
  1. CADUET [Suspect]
     Indication: HYPERLIPIDAEMIA
     Route: 048
     Dates: start: 20090723
  2. ATACAND HCT [Suspect]
     Indication: HYPERTENSION
     Route: 048
     Dates: start: 20090723
  3. CELEXA [Concomitant]
  4. METOPROLOL XL [Concomitant]
  5. METOCLOPRAMIDE [Concomitant]
  6. ASPIRIN [Concomitant]
  7. RISPERIDONE [Concomitant]

REACTIONS (2)
  - Headache [Recovered/Resolved]
  - Hypertension [Recovered/Resolved]
